FAERS Safety Report 6095694-1 (Version None)
Quarter: 2009Q1

REPORT INFORMATION
  Report Type: 
  Country: None (occurrence: None)
  Receive Date: 20090227
  Receipt Date: 20080523
  Transmission Date: 20090719
  Serious: No
  Sender: FDA-Public Use
  Company Number: A0729456A

PATIENT
  Age: 25 Year
  Sex: Male

DRUGS (2)
  1. LAMICTAL [Suspect]
     Indication: BIPOLAR II DISORDER
     Dosage: 200MG TWICE PER DAY
     Route: 048
  2. BUSPAR [Concomitant]

REACTIONS (5)
  - MUSCLE TWITCHING [None]
  - NAUSEA [None]
  - SLEEP DISORDER [None]
  - WEIGHT FLUCTUATION [None]
  - WEIGHT INCREASED [None]
